FAERS Safety Report 23494888 (Version 2)
Quarter: 2024Q4

REPORT INFORMATION
  Report Type: Spontaneous
  Country: US (occurrence: US)
  Receive Date: 20240207
  Receipt Date: 20241011
  Transmission Date: 20250115
  Serious: No
  Sender: SANOFI AVENTIS
  Company Number: US-SA-SAC20240201000084

PATIENT
  Age: 11 Year
  Sex: Male

DRUGS (1)
  1. DUPIXENT [Suspect]
     Active Substance: DUPILUMAB
     Indication: Dermatitis atopic
     Dosage: 300 MG, QOW
     Route: 058
     Dates: start: 202307

REACTIONS (8)
  - Pruritus [Unknown]
  - Anxiety [Unknown]
  - Stress [Unknown]
  - Dermatitis atopic [Unknown]
  - Erythema [Unknown]
  - Rash [Not Recovered/Not Resolved]
  - Skin discolouration [Unknown]
  - Visual impairment [Unknown]
